FAERS Safety Report 11429912 (Version 1)
Quarter: 2015Q3

REPORT INFORMATION
  Report Type: Spontaneous
  Country: US (occurrence: US)
  Receive Date: 20150828
  Receipt Date: 20150828
  Transmission Date: 20151125
  Serious: No
  Sender: FDA-Public Use
  Company Number: US-ROCHE-1170633

PATIENT
  Sex: Female

DRUGS (2)
  1. PEGASYS [Suspect]
     Active Substance: PEGINTERFERON ALFA-2A
     Indication: CHRONIC HEPATITIS C
     Route: 058
     Dates: start: 20121212
  2. COPEGUS [Suspect]
     Active Substance: RIBAVIRIN
     Indication: CHRONIC HEPATITIS C
     Route: 048
     Dates: start: 20121212

REACTIONS (8)
  - Rash [Not Recovered/Not Resolved]
  - Lip dry [Not Recovered/Not Resolved]
  - Dehydration [Not Recovered/Not Resolved]
  - Eczema [Not Recovered/Not Resolved]
  - Nausea [Not Recovered/Not Resolved]
  - Dry skin [Not Recovered/Not Resolved]
  - Influenza like illness [Unknown]
  - Pyrexia [Not Recovered/Not Resolved]
